FAERS Safety Report 24748731 (Version 1)
Quarter: 2024Q4

REPORT INFORMATION
  Report Type: Spontaneous
  Country: US (occurrence: None)
  Receive Date: 20241217
  Receipt Date: 20241217
  Transmission Date: 20250115
  Serious: Yes (Other)
  Sender: Public
  Company Number: None

PATIENT
  Age: 50 Year
  Sex: Female
  Weight: 72 kg

DRUGS (3)
  1. SULFAMETHOXAZOLE\TRIMETHOPRIM [Suspect]
     Active Substance: SULFAMETHOXAZOLE\TRIMETHOPRIM
     Indication: Staphylococcal infection
     Dosage: OTHER STRENGTH : DOUBLE STRENGTH;?OTHER QUANTITY : 10 TABLET(S);?FREQUENCY : TWICE A DAY;?
     Route: 048
     Dates: start: 20241215, end: 20241217
  2. LAMICTAL [Concomitant]
     Active Substance: LAMOTRIGINE
  3. BENADRYL [Concomitant]
     Active Substance: DIPHENHYDRAMINE HYDROCHLORIDE

REACTIONS (8)
  - Pruritus [None]
  - Pruritus [None]
  - Erythema [None]
  - Decreased appetite [None]
  - Nausea [None]
  - Gastrointestinal disorder [None]
  - Vomiting projectile [None]
  - Product intolerance [None]

NARRATIVE: CASE EVENT DATE: 20241216
